FAERS Safety Report 14707855 (Version 1)
Quarter: 2018Q2

REPORT INFORMATION
  Report Type: Other
  Country: FR (occurrence: FR)
  Receive Date: 20180403
  Receipt Date: 20180403
  Transmission Date: 20180711
  Serious: Yes (Hospitalization, Other)
  Sender: FDA-Public Use
  Company Number: FR-MACLEODS PHARMACEUTICALS US LTD-MAC2018011962

PATIENT

DRUGS (5)
  1. ZOPICLONE [Suspect]
     Active Substance: ZOPICLONE
     Indication: POISONING DELIBERATE
     Dosage: UNK, UNSPECIFIED
     Route: 048
     Dates: start: 20180221, end: 20180221
  2. ARIPIPRAZOLE. [Suspect]
     Active Substance: ARIPIPRAZOLE
     Indication: POISONING DELIBERATE
     Dosage: UNK, UNSPECIFIED
     Route: 048
     Dates: start: 20180221, end: 20180221
  3. BRINTELLIX [Suspect]
     Active Substance: VORTIOXETINE HYDROBROMIDE
     Indication: POISONING DELIBERATE
     Dosage: UNK, UNSPECIFIED
     Route: 048
     Dates: start: 20180221, end: 20180221
  4. SERESTA [Suspect]
     Active Substance: OXAZEPAM
     Indication: POISONING DELIBERATE
     Dosage: UNK, UNSPECIFIED
     Route: 048
     Dates: start: 20180221, end: 20180221
  5. TERCIAN [Suspect]
     Active Substance: CYAMEMAZINE
     Indication: POISONING DELIBERATE
     Dosage: UNK, UNSPECIFIED
     Route: 048
     Dates: start: 20180221, end: 20180221

REACTIONS (3)
  - Confusional state [Recovered/Resolved]
  - Poisoning deliberate [Recovered/Resolved]
  - Depressed level of consciousness [Recovered/Resolved]

NARRATIVE: CASE EVENT DATE: 20180222
